FAERS Safety Report 4457928-6 (Version None)
Quarter: 2004Q3

REPORT INFORMATION
  Report Type: 
  Country: None (occurrence: None)
  Receive Date: 20040922
  Receipt Date: 20040906
  Transmission Date: 20050211
  Serious: No
  Sender: FDA-Public Use
  Company Number: 2004GB02163

PATIENT
  Age: 57 Year
  Sex: Male

DRUGS (1)
  1. OMEPRAZOLE [Suspect]
     Indication: ANTACID THERAPY
     Dosage: 10 MG QD PO
     Route: 048
     Dates: start: 20040701, end: 20040704

REACTIONS (3)
  - DERMATITIS EXFOLIATIVE [None]
  - OEDEMA PERIPHERAL [None]
  - SKIN REACTION [None]
